FAERS Safety Report 9999349 (Version 1)
Quarter: 2014Q1

REPORT INFORMATION
  Report Type: Spontaneous
  Country: US (occurrence: None)
  Receive Date: 20140311
  Receipt Date: 20140311
  Transmission Date: 20141002
  Serious: Yes (Other)
  Sender: FDA-Public Use
  Company Number: None

PATIENT
  Age: 53 Year
  Sex: Female
  Weight: 66 kg

DRUGS (7)
  1. BOTOX [Suspect]
     Indication: BLADDER DISORDER
     Dates: start: 20131101, end: 20131101
  2. DEPLIN [Concomitant]
  3. AVONEX PEN [Concomitant]
  4. DOCUSATE [Concomitant]
  5. D [Concomitant]
  6. CRANBERRY [Concomitant]
  7. B COMPLEX VITAMINS [Concomitant]

REACTIONS (1)
  - Gait disturbance [None]
